FAERS Safety Report 7560877-8 (Version None)
Quarter: 2011Q2

REPORT INFORMATION
  Report Type: 
  Country: None (occurrence: None)
  Receive Date: 20110620
  Receipt Date: 20110620
  Transmission Date: 20111010
  Serious: No
  Sender: FDA-Public Use
  Company Number: None

PATIENT
  Age: 70 Year
  Sex: Male
  Weight: 81.6475 kg

DRUGS (1)
  1. FINASTERIDE [Suspect]
     Indication: NOCTURIA
     Dosage: ONE DAILY
     Dates: start: 20091117, end: 20100401

REACTIONS (4)
  - DISCOMFORT [None]
  - WHEEZING [None]
  - LIFE EXPECTANCY SHORTENED [None]
  - PAIN [None]
